FAERS Safety Report 7988764-1 (Version None)
Quarter: 2011Q4

REPORT INFORMATION
  Report Type: 
  Country: None (occurrence: None)
  Receive Date: 20111219
  Receipt Date: 20111207
  Transmission Date: 20120403
  Serious: Yes (Hospitalization)
  Sender: FDA-Public Use
  Company Number: BR-BIOGENIDEC-2011BI020538

PATIENT
  Age: 35 Year
  Sex: Female

DRUGS (1)
  1. AVONEX [Suspect]
     Indication: MULTIPLE SCLEROSIS
     Route: 030
     Dates: start: 20101210, end: 20111101

REACTIONS (4)
  - PYELONEPHRITIS [None]
  - MULTIPLE SCLEROSIS [None]
  - URINARY TRACT INFECTION [None]
  - MULTIPLE SCLEROSIS RELAPSE [None]
